FAERS Safety Report 17879939 (Version 1)
Quarter: 2020Q2

REPORT INFORMATION
  Report Type: Spontaneous
  Country: PL (occurrence: PL)
  Receive Date: 20200610
  Receipt Date: 20200610
  Transmission Date: 20200714
  Serious: Yes (Other)
  Sender: FDA-Public Use
  Company Number: PL-PFIZER INC-2020223000

PATIENT
  Age: 45 Year
  Sex: Male

DRUGS (1)
  1. SOMAVERT [Suspect]
     Active Substance: PEGVISOMANT
     Dosage: 15 MG, 1X/DAY
     Route: 058
     Dates: start: 202002

REACTIONS (4)
  - Colitis ulcerative [Unknown]
  - Headache [Unknown]
  - Libido increased [Unknown]
  - Diarrhoea haemorrhagic [Unknown]
